FAERS Safety Report 21326061 (Version 1)
Quarter: 2022Q3

REPORT INFORMATION
  Report Type: Spontaneous
  Country: IN (occurrence: None)
  Receive Date: 20220913
  Receipt Date: 20220913
  Transmission Date: 20221027
  Serious: Yes (Hospitalization, Other)
  Sender: FDA-Public Use
  Company Number: IN-Unichem Pharmaceuticals (USA) Inc-UCM202209-000920

PATIENT
  Age: 27 Year
  Sex: Male

DRUGS (2)
  1. AMLODIPINE [Suspect]
     Active Substance: AMLODIPINE BESYLATE
     Indication: Overdose
     Dosage: 60 TABLETS OF 10 MG
  2. BISOPROLOL FUMARATE [Suspect]
     Active Substance: BISOPROLOL FUMARATE
     Indication: Overdose
     Dosage: 30 TABLETS OF 15 MG

REACTIONS (3)
  - Blood lactic acid increased [Recovering/Resolving]
  - Hypotension [Recovering/Resolving]
  - Toxicity to various agents [Unknown]
